FAERS Safety Report 14245659 (Version 4)
Quarter: 2024Q4

REPORT INFORMATION
  Report Type: Spontaneous
  Country: EG (occurrence: EG)
  Receive Date: 20171204
  Receipt Date: 20241023
  Transmission Date: 20250115
  Serious: Yes (Hospitalization, Other)
  Sender: MACLEODS
  Company Number: None

PATIENT

DRUGS (2)
  1. LEVOFLOXACIN [Suspect]
     Active Substance: LEVOFLOXACIN
     Indication: Ear infection
     Dosage: 500 MILLIGRAM, BID
     Route: 048
  2. ENOXAPARIN SODIUM [Concomitant]
     Active Substance: ENOXAPARIN SODIUM
     Indication: Deep vein thrombosis
     Dosage: UNK
     Route: 065

REACTIONS (10)
  - Neurotoxicity [Not Recovered/Not Resolved]
  - Laryngospasm [Not Recovered/Not Resolved]
  - Skin discolouration [Recovering/Resolving]
  - Paresis [Recovering/Resolving]
  - Complex regional pain syndrome [Recovering/Resolving]
  - Head titubation [Recovering/Resolving]
  - Allodynia [Recovering/Resolving]
  - Peripheral coldness [Recovering/Resolving]
  - Peripheral swelling [Recovering/Resolving]
  - Pain in extremity [Recovering/Resolving]
